FAERS Safety Report 13579793 (Version 1)
Quarter: 2017Q2

REPORT INFORMATION
  Report Type: Spontaneous
  Country: US (occurrence: US)
  Receive Date: 20170525
  Receipt Date: 20170525
  Transmission Date: 20170830
  Serious: Yes (Other)
  Sender: FDA-Public Use
  Company Number: US-CLINIGEN GROUP PLC/ CLINIGEN HEALTHCARE LTD-E2B_00004659

PATIENT
  Age: 28 Year
  Sex: Male

DRUGS (4)
  1. PENTAMIDINE [Concomitant]
     Active Substance: PENTAMIDINE
     Route: 055
  2. FOSCARNET?SODIUM [Suspect]
     Active Substance: FOSCARNET SODIUM
     Indication: CYTOMEGALOVIRUS INFECTION
     Route: 042
  3. AZT [Concomitant]
     Active Substance: ZIDOVUDINE
     Route: 048
  4. FLUCONAZOLE. [Concomitant]
     Active Substance: FLUCONAZOLE
     Route: 048

REACTIONS (4)
  - Paraesthesia [Unknown]
  - Tremor [Unknown]
  - Hypokalaemia [Unknown]
  - Muscle spasms [Unknown]

NARRATIVE: CASE EVENT DATE: 199301
